FAERS Safety Report 9684107 (Version 1)
Quarter: 2013Q4

REPORT INFORMATION
  Report Type: Spontaneous
  Country: TR (occurrence: TR)
  Receive Date: 20131112
  Receipt Date: 20131112
  Transmission Date: 20140711
  Serious: Yes (Hospitalization)
  Sender: FDA-Public Use
  Company Number: PHHY2013TR125688

PATIENT
  Age: 44 Year
  Sex: Female

DRUGS (7)
  1. RIFAMPICIN [Suspect]
     Indication: TUBERCULOSIS
  2. RIFAMPICIN [Suspect]
     Dosage: 10 MG/KG/DAY
  3. ISONIAZID [Concomitant]
     Indication: TUBERCULOSIS
  4. PYRAZINAMIDE [Concomitant]
     Indication: TUBERCULOSIS
  5. ETHAMBUTOL [Concomitant]
     Indication: TUBERCULOSIS
  6. METHYLPREDNISOLONE [Concomitant]
  7. THYROID HORMONES [Concomitant]

REACTIONS (11)
  - Acute prerenal failure [Recovered/Resolved]
  - Adrenocortical insufficiency acute [Recovered/Resolved]
  - Malaise [Recovered/Resolved]
  - Depressed level of consciousness [Recovered/Resolved]
  - Nausea [Recovered/Resolved]
  - Vomiting [Recovered/Resolved]
  - Blood pressure decreased [Recovered/Resolved]
  - Hyponatraemia [Recovered/Resolved]
  - Dry skin [Recovered/Resolved]
  - Mucosal dryness [Recovered/Resolved]
  - Pallor [Recovered/Resolved]
